FAERS Safety Report 23281432 (Version 1)
Quarter: 2023Q4

REPORT INFORMATION
  Report Type: Spontaneous
  Country: CL (occurrence: CL)
  Receive Date: 20231211
  Receipt Date: 20231211
  Transmission Date: 20240109
  Serious: Yes (Death, Hospitalization, Other)
  Sender: FDA-Public Use
  Company Number: CL-BAXTER-2023BAX037326

PATIENT
  Age: 41 Year
  Sex: Male
  Weight: 70 kg

DRUGS (11)
  1. DIANEAL PD-2 WITH DEXTROSE [Suspect]
     Active Substance: CALCIUM CHLORIDE\DEXTROSE\MAGNESIUM CHLORIDE\SODIUM CHLORIDE\SODIUM LACTATE
     Indication: Peritoneal dialysis
     Dosage: 2.5L (LITERS) VIA APD
     Route: 033
     Dates: start: 202306, end: 20231029
  2. DIANEAL PD-2 WITH DEXTROSE [Suspect]
     Active Substance: CALCIUM CHLORIDE\DEXTROSE\MAGNESIUM CHLORIDE\SODIUM CHLORIDE\SODIUM LACTATE
     Indication: Peritoneal dialysis
     Dosage: 2L (LITERS) VIA CAPD
     Route: 033
     Dates: start: 202306, end: 20231029
  3. DIANEAL PD-2 WITH DEXTROSE [Suspect]
     Active Substance: CALCIUM CHLORIDE\DEXTROSE\MAGNESIUM CHLORIDE\SODIUM CHLORIDE\SODIUM LACTATE
     Indication: Peritoneal dialysis
     Dosage: 6L (LITERS)
     Route: 033
     Dates: start: 202306, end: 20231029
  4. PREDNISONE [Concomitant]
     Active Substance: PREDNISONE
     Dosage: 10 MG DAILY
     Route: 065
  5. AZATHIOPRINE [Concomitant]
     Active Substance: AZATHIOPRINE
     Dosage: 50 MG EVERY 48 HOURS
     Route: 065
  6. OMEPRAZOLE [Concomitant]
     Active Substance: OMEPRAZOLE
     Dosage: 20 MG DAILY
     Route: 065
  7. FOLIC ACID [Concomitant]
     Active Substance: FOLIC ACID
     Dosage: 5 MG DAILY
     Route: 065
  8. CINACALCET [Concomitant]
     Active Substance: CINACALCET
     Route: 065
  9. CALCIUM ACETATE [Concomitant]
     Active Substance: CALCIUM ACETATE
     Dosage: 2 TABLETS EVERY 8 HOURS
     Route: 065
  10. MIRTAZAPINE [Concomitant]
     Active Substance: MIRTAZAPINE
     Dosage: 7.5 MG DAILY
     Route: 065
  11. METHADONE [Concomitant]
     Active Substance: METHADONE HYDROCHLORIDE
     Dosage: 3 MG ACCORDING TO NEED
     Route: 058

REACTIONS (2)
  - Shock haemorrhagic [Fatal]
  - Ischaemic pancreatitis [Fatal]

NARRATIVE: CASE EVENT DATE: 20231030
